FAERS Safety Report 23187676 (Version 3)
Quarter: 2023Q4

REPORT INFORMATION
  Report Type: Spontaneous
  Country: US (occurrence: US)
  Receive Date: 20231115
  Receipt Date: 20231122
  Transmission Date: 20240110
  Serious: Yes (Other)
  Sender: FDA-Public Use
  Company Number: US-ORGANON-O2311USA001214

PATIENT
  Age: 19 Year
  Sex: Female
  Weight: 58.957 kg

DRUGS (1)
  1. NEXPLANON [Suspect]
     Active Substance: ETONOGESTREL
     Indication: Contraception
     Dosage: 1 IMPLANT
     Route: 059
     Dates: start: 20231016

REACTIONS (2)
  - Pregnancy on contraceptive [Unknown]
  - Unintended pregnancy [Unknown]
